FAERS Safety Report 23284722 (Version 1)
Quarter: 2023Q4

REPORT INFORMATION
  Report Type: Spontaneous
  Country: US (occurrence: US)
  Receive Date: 20231211
  Receipt Date: 20231211
  Transmission Date: 20240110
  Serious: Yes (Other)
  Sender: FDA-Public Use
  Company Number: US-BAYER-2023A171624

PATIENT
  Age: 70 Year
  Sex: Male

DRUGS (1)
  1. NUBEQA [Suspect]
     Active Substance: DAROLUTAMIDE
     Indication: Prostate cancer stage IV
     Dosage: UNK
     Dates: start: 2023, end: 20231129

REACTIONS (7)
  - Gait inability [None]
  - General physical health deterioration [None]
  - Mobility decreased [None]
  - Loss of personal independence in daily activities [None]
  - Decreased appetite [None]
  - Visual impairment [None]
  - Fatigue [None]
